FAERS Safety Report 7461385-5 (Version None)
Quarter: 2011Q2

REPORT INFORMATION
  Report Type: 
  Country: None (occurrence: None)
  Receive Date: 20110506
  Receipt Date: 20110503
  Transmission Date: 20111010
  Serious: Yes (Other)
  Sender: FDA-Public Use
  Company Number: US-RB-024833-11

PATIENT
  Age: 30 Year
  Sex: Female

DRUGS (1)
  1. MUCINEX DM [Suspect]
     Dosage: PATIENT TOOK TWO TABLETS ON 02-MAY-2011 AND TWO TABLETS ON 03-MAY-2011.
     Route: 048

REACTIONS (3)
  - FATIGUE [None]
  - HALLUCINATION [None]
  - RESTLESSNESS [None]
